FAERS Safety Report 8881267 (Version 2)
Quarter: 2013Q1

REPORT INFORMATION
  Report Type: Spontaneous
  Country: US (occurrence: US)
  Receive Date: 20121031
  Receipt Date: 20130201
  Transmission Date: 20140127
  Serious: Yes (Other)
  Sender: FDA-Public Use
  Company Number: US-ELI_LILLY_AND_COMPANY-US201207000121

PATIENT
  Age: 70 None
  Sex: Female
  Weight: 34.92 kg

DRUGS (5)
  1. FORTEO [Suspect]
     Indication: OSTEOPOROSIS
     Dosage: 20 UG, QD
     Route: 065
     Dates: start: 201206, end: 201206
  2. FORTEO [Suspect]
     Dosage: 20 UG, QD
     Route: 065
     Dates: start: 201206
  3. FORTEO [Suspect]
     Dosage: 20 UG, QD
     Dates: start: 201206, end: 20121017
  4. VITAMIN C [Concomitant]
     Dosage: UNK
  5. VITAMIN D [Concomitant]

REACTIONS (16)
  - Obstruction gastric [Unknown]
  - Hernia [Unknown]
  - Pain in extremity [Recovered/Resolved]
  - Sleep disorder due to general medical condition, insomnia type [Unknown]
  - Injection site bruising [Recovered/Resolved]
  - Intentional drug misuse [Recovered/Resolved]
  - Blood calcium increased [Unknown]
  - Malaise [Unknown]
  - Vomiting [Unknown]
  - Coordination abnormal [Unknown]
  - Influenza like illness [Unknown]
  - Gait disturbance [Unknown]
  - Asthenia [Unknown]
  - Malaise [Unknown]
  - Injection site atrophy [Unknown]
  - Weight decreased [Unknown]
